FAERS Safety Report 6170856-3 (Version None)
Quarter: 2009Q2

REPORT INFORMATION
  Report Type: 
  Country: None (occurrence: None)
  Receive Date: 20090427
  Receipt Date: 20090408
  Transmission Date: 20091009
  Serious: Yes (Hospitalization)
  Sender: FDA-Public Use
  Company Number: 09-139

PATIENT
  Age: 77 Year
  Sex: Female

DRUGS (11)
  1. VITAMIN D [Suspect]
     Indication: OSTEOPOROSIS
     Dosage: 50,000 IU, DAILY, ORAL
     Route: 048
     Dates: start: 20040401, end: 20090324
  2. VITAMIN D [Suspect]
     Indication: OSTEOPOROSIS
     Dosage: 50,000 IU, DAILY, ORAL
     Route: 048
     Dates: start: 20090324
  3. LISINOPRIL [Concomitant]
  4. ATENOLOL [Concomitant]
  5. WARFARIN [Concomitant]
  6. SIMVASTATIN [Concomitant]
  7. OSCAL 500 [Concomitant]
  8. RESTARIL [Concomitant]
  9. ZYRTEC [Concomitant]
  10. LEVOTHYROXINE SODIUM [Concomitant]
  11. TEMAZEPAM [Concomitant]

REACTIONS (6)
  - DIZZINESS [None]
  - ERYTHEMA [None]
  - IMPAIRED HEALING [None]
  - NAUSEA [None]
  - OEDEMA PERIPHERAL [None]
  - PAIN IN EXTREMITY [None]
